FAERS Safety Report 9364790 (Version 1)
Quarter: 2013Q2

REPORT INFORMATION
  Report Type: Spontaneous
  Country: FR (occurrence: FR)
  Receive Date: 20130624
  Receipt Date: 20130624
  Transmission Date: 20140414
  Serious: Yes (Other)
  Sender: FDA-Public Use
  Company Number: FR-CUBIST PHARMACEUTICALS, INC.-2013CBST000522

PATIENT
  Sex: 0

DRUGS (3)
  1. CUBICIN [Suspect]
     Indication: STAPHYLOCOCCAL SEPSIS
     Dosage: 500 MG, ONCE A DAY
     Route: 042
     Dates: start: 20100905, end: 20100907
  2. CUBICIN [Suspect]
     Indication: DEVICE RELATED SEPSIS
  3. CUBICIN [Suspect]
     Indication: OFF LABEL USE

REACTIONS (2)
  - Hepatocellular injury [Recovering/Resolving]
  - Hepatocellular injury [None]
